FAERS Safety Report 11855384 (Version 1)
Quarter: 2015Q4

REPORT INFORMATION
  Report Type: Other
  Country: GB (occurrence: GB)
  Receive Date: 20151221
  Receipt Date: 20151221
  Transmission Date: 20160305
  Serious: Yes (Other)
  Sender: FDA-Public Use
  Company Number: GB-MYLANLABS-2015M1044171

PATIENT

DRUGS (17)
  1. AMILORIDE HYDROCHLORIDE. [Concomitant]
     Active Substance: AMILORIDE HYDROCHLORIDE
     Indication: BLOOD POTASSIUM
     Dosage: 1 DF, QD (EVERY MORNING)
     Dates: start: 20150709
  2. AMITRIPTYLINE HYDROCHLORIDE. [Concomitant]
     Active Substance: AMITRIPTYLINE HYDROCHLORIDE
     Indication: HEADACHE
     Dosage: 3 DF, QD (AT NIGHT)
     Dates: start: 20150709
  3. DIHYDROCODEINE [Concomitant]
     Active Substance: DIHYDROCODEINE
     Dosage: UNK (ONE OR TWO TABLETS FOUR TIMES A DAY WHEN REQUIRED)
     Dates: start: 20150709
  4. HUMULIN NOS [Concomitant]
     Active Substance: INSULIN HUMAN
     Dosage: UNK (AS DIRECTED)
     Route: 058
     Dates: start: 20150709
  5. LIDOCAINE. [Concomitant]
     Active Substance: LIDOCAINE
     Dosage: UNK (USE AS DIRECTED)
     Dates: start: 20151023, end: 20151024
  6. VALSARTAN. [Concomitant]
     Active Substance: VALSARTAN
     Dosage: 1 DF, QD
     Dates: start: 20150709
  7. CO-AMOXICLAV                       /00756801/ [Concomitant]
     Active Substance: AMOXICILLIN\CLAVULANIC ACID
     Dosage: 1 DF, TID
     Dates: start: 20151116, end: 20151123
  8. IMIPRAMINE [Concomitant]
     Active Substance: IMIPRAMINE
     Indication: FUNCTIONAL GASTROINTESTINAL DISORDER
     Dosage: 2 DF, QD (AT NIGHT)
     Dates: start: 20150709
  9. LANSOPRAZOLE. [Concomitant]
     Active Substance: LANSOPRAZOLE
     Indication: GASTRIC PH DECREASED
     Dosage: 2 DF, QD (EVERY MORNING)
     Dates: start: 20150709
  10. SOFRADEX                           /00659601/ [Concomitant]
     Dosage: UNK (USE AS DIRECTED)
     Dates: start: 20150709
  11. CLARITHROMYCIN. [Suspect]
     Active Substance: CLARITHROMYCIN
     Dosage: UNK
     Dates: start: 20151116
  12. METFORMIN [Concomitant]
     Active Substance: METFORMIN HYDROCHLORIDE
     Indication: DIABETES MELLITUS
     Dosage: 2 DF, BID
     Dates: start: 20150709
  13. ROSUVASTATIN [Concomitant]
     Active Substance: ROSUVASTATIN
     Indication: BLOOD CHOLESTEROL
     Dosage: 1 DF, QD (EVERY NIGHT)
     Dates: start: 20150709
  14. DAPAGLIFLOZIN [Concomitant]
     Active Substance: DAPAGLIFLOZIN
     Dosage: 1 DF, QD
     Dates: start: 20150709
  15. FLUCLOXACILLIN [Concomitant]
     Active Substance: FLUCLOXACILLIN
     Dosage: 1 DF, QID
     Dates: start: 20151023, end: 20151030
  16. TETRALYSAL                         /00001701/ [Concomitant]
     Active Substance: LYMECYCLINE
     Dosage: 1 DF, QD
     Dates: start: 20150709
  17. FUROSEMIDE. [Concomitant]
     Active Substance: FUROSEMIDE
     Indication: JOINT SWELLING
     Dosage: 2 DF, QD (EVERY MORNING)
     Dates: start: 20150709

REACTIONS (3)
  - Vertigo [Recovered/Resolved]
  - Dyspnoea [Recovered/Resolved]
  - Syncope [Recovered/Resolved]

NARRATIVE: CASE EVENT DATE: 20151130
